FAERS Safety Report 9786832 (Version 1)
Quarter: 2013Q4

REPORT INFORMATION
  Report Type: Spontaneous
  Country: PK (occurrence: PK)
  Receive Date: 20131227
  Receipt Date: 20131227
  Transmission Date: 20140711
  Serious: Yes (Other)
  Sender: FDA-Public Use
  Company Number: PK-WATSON-2013-23206

PATIENT
  Age: 33 Year
  Sex: Female

DRUGS (5)
  1. CABERGOLINE (UNKNOWN) [Suspect]
     Indication: PROLACTINOMA
     Dosage: 0.5 MG, 2/WEEK
     Route: 065
  2. CABERGOLINE (UNKNOWN) [Suspect]
     Dosage: 0.25 MG, 1/WEEK
     Route: 065
  3. PROGESTERONE [Concomitant]
     Indication: WITHDRAWAL BLEED
     Dosage: UNK
     Route: 065
  4. FOLIC ACID [Concomitant]
     Indication: VITAMIN SUPPLEMENTATION
     Dosage: 5 MG, DAILY
     Route: 065
  5. MECLIZINE                          /00072801/ [Concomitant]
     Indication: VOMITING IN PREGNANCY
     Dosage: UNK
     Route: 065

REACTIONS (4)
  - Jaundice cholestatic [Unknown]
  - Induced labour [Unknown]
  - Headache [Not Recovered/Not Resolved]
  - Maternal exposure during pregnancy [Recovered/Resolved]
